FAERS Safety Report 5021788-5 (Version None)
Quarter: 2006Q2

REPORT INFORMATION
  Report Type: 
  Country: None (occurrence: None)
  Receive Date: 20060605
  Receipt Date: 20060523
  Transmission Date: 20061013
  Serious: Yes (Other)
  Sender: FDA-Public Use
  Company Number: 2006PV012914

PATIENT
  Age: 78 Year
  Sex: Male
  Weight: 77.1115 kg

DRUGS (14)
  1. BYETTA [Suspect]
     Indication: DIABETES MELLITUS NON-INSULIN-DEPENDENT
     Dosage: 5 MCG BID SC; 10 MCG BID SC
     Route: 058
     Dates: start: 20060329, end: 20060401
  2. BYETTA [Suspect]
     Indication: DIABETES MELLITUS NON-INSULIN-DEPENDENT
     Dosage: 5 MCG BID SC; 10 MCG BID SC
     Route: 058
     Dates: start: 20060401
  3. PRANDIN [Concomitant]
  4. AVANDIA [Concomitant]
  5. NPH INSULIN [Concomitant]
  6. AMARYL [Concomitant]
  7. ISOSOBIDE [Concomitant]
  8. ALTACE [Concomitant]
  9. COREG [Concomitant]
  10. HYZAAR [Concomitant]
  11. LEVOTHROID [Concomitant]
  12. AMITRIPTYLINE HCL [Concomitant]
  13. ZETIA [Concomitant]
  14. LEVEMIR [Concomitant]

REACTIONS (9)
  - ATELECTASIS [None]
  - ATRIAL FIBRILLATION [None]
  - BLOOD GLUCOSE FLUCTUATION [None]
  - BUNDLE BRANCH BLOCK LEFT [None]
  - BUNDLE BRANCH BLOCK RIGHT [None]
  - CONFUSIONAL STATE [None]
  - DISORIENTATION [None]
  - HYPOGLYCAEMIA [None]
  - LOSS OF CONSCIOUSNESS [None]
